FAERS Safety Report 22626988 (Version 2)
Quarter: 2023Q4

REPORT INFORMATION
  Report Type: Spontaneous
  Country: US (occurrence: US)
  Receive Date: 20230622
  Receipt Date: 20231027
  Transmission Date: 20240110
  Serious: Yes (Other)
  Sender: FDA-Public Use
  Company Number: US-NEBO-PC010981

PATIENT

DRUGS (2)
  1. MONOFERRIC [Suspect]
     Active Substance: FERRIC DERISOMALTOSE
     Indication: Product used for unknown indication
     Route: 050
  2. FAMOTIDINE [Concomitant]
     Active Substance: FAMOTIDINE
     Indication: Premedication

REACTIONS (1)
  - Anaphylactic reaction [Recovered/Resolved]
